FAERS Safety Report 7036375-7 (Version None)
Quarter: 2010Q4

REPORT INFORMATION
  Report Type: 
  Country: None (occurrence: None)
  Receive Date: 20101008
  Receipt Date: 20101004
  Transmission Date: 20110411
  Serious: Yes (Hospitalization)
  Sender: FDA-Public Use
  Company Number: CA-MERCK-1010USA00338

PATIENT
  Sex: Male

DRUGS (1)
  1. ZOLINZA [Suspect]
     Route: 048

REACTIONS (1)
  - DYSPNOEA [None]
